FAERS Safety Report 7120870-6 (Version None)
Quarter: 2010Q4

REPORT INFORMATION
  Report Type: 
  Country: None (occurrence: None)
  Receive Date: 20101124
  Receipt Date: 20091119
  Transmission Date: 20110411
  Serious: No
  Sender: FDA-Public Use
  Company Number: US-PFIZER INC-2009295691

PATIENT
  Age: 50 Year
  Sex: Male

DRUGS (3)
  1. TIKOSYN [Suspect]
  2. ALDACTONE [Suspect]
  3. DIGOXIN [Suspect]

REACTIONS (5)
  - BLOOD PRESSURE ABNORMAL [None]
  - DIZZINESS [None]
  - GAIT DISTURBANCE [None]
  - PROSTATIC DISORDER [None]
  - PULSE ABNORMAL [None]
